FAERS Safety Report 4963580-3 (Version None)
Quarter: 2006Q2

REPORT INFORMATION
  Report Type: 
  Country: None (occurrence: None)
  Receive Date: 20060405
  Receipt Date: 20060330
  Transmission Date: 20061013
  Serious: Yes (Hospitalization)
  Sender: FDA-Public Use
  Company Number: FR-AVENTIS-200611166FR

PATIENT
  Age: 42 Year
  Sex: Male

DRUGS (1)
  1. RODOGYL [Suspect]
     Route: 048
     Dates: start: 20060112, end: 20060118

REACTIONS (4)
  - PRURITUS [None]
  - PYREXIA [None]
  - RASH [None]
  - URTICARIA [None]
